FAERS Safety Report 5100684-9 (Version None)
Quarter: 2006Q3

REPORT INFORMATION
  Report Type: 
  Country: None (occurrence: None)
  Receive Date: 20060906
  Receipt Date: 20060824
  Transmission Date: 20061208
  Serious: Yes (Hospitalization)
  Sender: FDA-Public Use
  Company Number: REM_00219_2006

PATIENT
  Age: 44 Year
  Sex: Female
  Weight: 79.5 kg

DRUGS (10)
  1. REMODULIN [Suspect]
     Indication: PULMONARY HYPERTENSION
     Dosage: 6 MG/KG CONTINUOUS SC
     Route: 058
     Dates: start: 20060711
  2. SILDENAFIL [Concomitant]
  3. LASIX [Concomitant]
  4. ALDACTONE [Concomitant]
  5. NEURONTIN [Concomitant]
  6. NORFLEX [Concomitant]
  7. K-DUR 10 [Concomitant]
  8. TYLENOL W/ CODEINE [Concomitant]
  9. PSEUSDOEPHEDRINE [Concomitant]
  10. MAALOX FAST BLOCKER [Concomitant]

REACTIONS (6)
  - DEHYDRATION [None]
  - DIARRHOEA [None]
  - HEADACHE [None]
  - MIGRAINE [None]
  - NAUSEA [None]
  - VOMITING [None]
